FAERS Safety Report 15181152 (Version 2)
Quarter: 2018Q3

REPORT INFORMATION
  Report Type: Spontaneous
  Country: US (occurrence: US)
  Receive Date: 20180723
  Receipt Date: 20180824
  Transmission Date: 20181010
  Serious: Yes (Other)
  Sender: FDA-Public Use
  Company Number: US-SA-2018SA196196

PATIENT
  Age: 60 Year
  Sex: Female

DRUGS (2)
  1. CHANTIX [Concomitant]
     Active Substance: VARENICLINE TARTRATE
  2. AUBAGIO [Suspect]
     Active Substance: TERIFLUNOMIDE
     Indication: MULTIPLE SCLEROSIS
     Dosage: 14 MG, QD
     Route: 048
     Dates: start: 20180504

REACTIONS (3)
  - Drug dose omission [Unknown]
  - Chest pain [Unknown]
  - Foot operation [Unknown]

NARRATIVE: CASE EVENT DATE: 201806
